FAERS Safety Report 25072138 (Version 1)
Quarter: 2025Q1

REPORT INFORMATION
  Report Type: Spontaneous
  Country: US (occurrence: US)
  Receive Date: 20250313
  Receipt Date: 20250313
  Transmission Date: 20250409
  Serious: No
  Sender: ROCHE
  Company Number: US-ROCHE-10000224849

PATIENT
  Age: 63 Year
  Sex: Female

DRUGS (1)
  1. ACTEMRA ACTPEN [Suspect]
     Active Substance: TOCILIZUMAB
     Indication: Enzyme abnormality
     Route: 058

REACTIONS (6)
  - Brain fog [Unknown]
  - Epistaxis [Unknown]
  - Urticaria [Unknown]
  - Ill-defined disorder [Unknown]
  - Cerebral disorder [Unknown]
  - Off label use [Unknown]
